FAERS Safety Report 7532499-6 (Version None)
Quarter: 2011Q2

REPORT INFORMATION
  Report Type: 
  Country: None (occurrence: None)
  Receive Date: 20110526
  Receipt Date: 20101130
  Transmission Date: 20111010
  Serious: Yes (Other)
  Sender: FDA-Public Use
  Company Number: OMX-2011-00004

PATIENT
  Sex: Female

DRUGS (2)
  1. APPLICATOR [Concomitant]
  2. EVICEL [Suspect]
     Indication: FACE LIFT
     Dates: start: 20100901, end: 20100901

REACTIONS (4)
  - PRODUCT QUALITY ISSUE [None]
  - OFF LABEL USE [None]
  - POST PROCEDURAL HAEMATOMA [None]
  - GRAFT COMPLICATION [None]
